FAERS Safety Report 15239909 (Version 1)
Quarter: 2018Q3

REPORT INFORMATION
  Report Type: Spontaneous
  Country: US (occurrence: US)
  Receive Date: 20180803
  Receipt Date: 20180803
  Transmission Date: 20181010
  Serious: No
  Sender: FDA-Public Use
  Company Number: US-PFIZER INC-2018306944

PATIENT
  Age: 75 Year
  Sex: Male

DRUGS (1)
  1. TESTOSTERONE CIPIONATE [Suspect]
     Active Substance: TESTOSTERONE
     Indication: HORMONE REPLACEMENT THERAPY
     Dosage: 1 MG, WEEKLY

REACTIONS (2)
  - Abnormal dreams [Unknown]
  - Peripheral swelling [Unknown]
